FAERS Safety Report 7594075-9 (Version None)
Quarter: 2011Q3

REPORT INFORMATION
  Report Type: 
  Country: None (occurrence: None)
  Receive Date: 20110706
  Receipt Date: 20110628
  Transmission Date: 20111222
  Serious: Yes (Other)
  Sender: FDA-Public Use
  Company Number: FR-CEPHALON-2011002936

PATIENT
  Sex: Female

DRUGS (5)
  1. TOPIRAMATE [Concomitant]
  2. DURAGESIC-100 [Concomitant]
     Route: 062
  3. ACUPAN [Concomitant]
  4. ACTIQ [Suspect]
     Indication: BACK PAIN
     Route: 002
     Dates: start: 20090101
  5. ACTIQ [Suspect]
     Route: 002
     Dates: start: 20100901, end: 20110101

REACTIONS (4)
  - DRUG DEPENDENCE [None]
  - DRUG ABUSE [None]
  - DRUG PRESCRIBING ERROR [None]
  - INTENTIONAL DRUG MISUSE [None]
